FAERS Safety Report 13175176 (Version 2)
Quarter: 2017Q1

REPORT INFORMATION
  Report Type: Spontaneous
  Country: FI (occurrence: FI)
  Receive Date: 20170201
  Receipt Date: 20170210
  Transmission Date: 20170428
  Serious: Yes (Other)
  Sender: FDA-Public Use
  Company Number: FI-BAYER-2017-017775

PATIENT
  Age: 53 Year
  Sex: Male

DRUGS (2)
  1. STIVARGA [Suspect]
     Active Substance: REGORAFENIB
     Dosage: 120MG FOR 6 DAYS + 80MG 4 DAYS + 7 DAYS PAUSE
     Dates: end: 201611
  2. STIVARGA [Suspect]
     Active Substance: REGORAFENIB
     Dosage: 160MG-120MG-80MG, 2+1 DOSING SCHEDULE
     Dates: start: 201509

REACTIONS (5)
  - Disease progression [None]
  - Palmar-plantar erythrodysaesthesia syndrome [None]
  - Hyperkeratosis [None]
  - Device related sepsis [None]
  - Dysphonia [None]
